FAERS Safety Report 5892250-2 (Version None)
Quarter: 2008Q3

REPORT INFORMATION
  Report Type: 
  Country: None (occurrence: None)
  Receive Date: 20080922
  Receipt Date: 20080911
  Transmission Date: 20090109
  Serious: Yes (Disabling)
  Sender: FDA-Public Use
  Company Number: DE-GILEAD-2008-0018145

PATIENT
  Sex: Male

DRUGS (2)
  1. VIREAD [Suspect]
     Indication: HEPATITIS B VIRUS TEST
  2. HEPSERA [Concomitant]
     Indication: HEPATITIS B VIRUS TEST

REACTIONS (1)
  - NEUROTOXICITY [None]
